FAERS Safety Report 6709062-X (Version None)
Quarter: 2010Q2

REPORT INFORMATION
  Report Type: 
  Country: None (occurrence: None)
  Receive Date: 20100430
  Receipt Date: 20100430
  Transmission Date: 20101027
  Serious: Yes (Hospitalization)
  Sender: FDA-Public Use
  Company Number: None

PATIENT
  Age: 66 Year
  Sex: Female
  Weight: 70.5 kg

DRUGS (1)
  1. NITROFURANTOIN [Suspect]
     Indication: URINARY TRACT INFECTION
     Dosage: UNK UNK ORAL 047
     Route: 048

REACTIONS (4)
  - COAGULOPATHY [None]
  - DEEP VEIN THROMBOSIS [None]
  - JAUNDICE [None]
  - MENTAL STATUS CHANGES [None]
